FAERS Safety Report 5981543-6 (Version None)
Quarter: 2008Q4

REPORT INFORMATION
  Report Type: 
  Country: None (occurrence: None)
  Receive Date: 20081202
  Receipt Date: 20081118
  Transmission Date: 20090506
  Serious: Yes (Hospitalization)
  Sender: FDA-Public Use
  Company Number: 1-16951623

PATIENT
  Age: 66 Year
  Sex: Male

DRUGS (2)
  1. PROPAFENONE HCL [Suspect]
     Indication: ATRIAL FIBRILLATION
     Dosage: ORAL
     Route: 048
  2. PROPAFENONE HCL [Suspect]
     Indication: ATRIAL FLUTTER
     Dosage: ORAL
     Route: 048

REACTIONS (1)
  - BRUGADA SYNDROME [None]
